FAERS Safety Report 22204785 (Version 2)
Quarter: 2023Q2

REPORT INFORMATION
  Report Type: Report from Study
  Country: CA (occurrence: CA)
  Receive Date: 20230413
  Receipt Date: 20230414
  Transmission Date: 20230722
  Serious: Yes (Other)
  Sender: FDA-Public Use
  Company Number: CA-JNJFOC-20230400705

PATIENT
  Age: 43 Year
  Sex: Female
  Weight: 137.5 kg

DRUGS (1)
  1. STELARA [Suspect]
     Active Substance: USTEKINUMAB
     Indication: Crohn^s disease
     Dosage: THE PATIENT RECEIVED 37TH INJECTION FOR 90 MG.
     Route: 058
     Dates: start: 20180711

REACTIONS (1)
  - Ear infection [Recovered/Resolved]

NARRATIVE: CASE EVENT DATE: 20230331
